FAERS Safety Report 6674997-3 (Version None)
Quarter: 2010Q2

REPORT INFORMATION
  Report Type: 
  Country: None (occurrence: None)
  Receive Date: 20100409
  Receipt Date: 20100330
  Transmission Date: 20101027
  Serious: Yes (Other)
  Sender: FDA-Public Use
  Company Number: US-JNJCH-2010008241

PATIENT
  Age: 55 Year
  Sex: Male

DRUGS (1)
  1. LISTERINE TOTAL CARE ANTICAVITY MOUTHWASH CINNAMINT [Suspect]
     Indication: DENTAL DISORDER PROPHYLAXIS
     Dosage: TEXT:2X PER DAY
     Route: 048
     Dates: start: 20100301, end: 20100326

REACTIONS (4)
  - CAUSTIC INJURY [None]
  - ORAL MUCOSAL EXFOLIATION [None]
  - SALIVARY GLAND DISORDER [None]
  - TONGUE EXFOLIATION [None]
